FAERS Safety Report 22356769 (Version 2)
Quarter: 2023Q2

REPORT INFORMATION
  Report Type: Report from Study
  Country: US (occurrence: US)
  Receive Date: 20230523
  Receipt Date: 20230531
  Transmission Date: 20230721
  Serious: Yes (Hospitalization)
  Sender: FDA-Public Use
  Company Number: US-PFIZER INC-US-GBT-019233

PATIENT
  Age: 24 Year
  Sex: Male

DRUGS (18)
  1. VOXELOTOR [Suspect]
     Active Substance: VOXELOTOR
     Indication: Sickle cell disease
     Dosage: 1500 MG, 1X/DAY
     Dates: start: 20200109, end: 2021
  2. VOXELOTOR [Suspect]
     Active Substance: VOXELOTOR
     Dosage: 1500 MG, 1X/DAY
     Dates: start: 20210205, end: 20210428
  3. VOXELOTOR [Suspect]
     Active Substance: VOXELOTOR
     Dosage: 1500 MG, 1X/DAY
     Dates: start: 20210507, end: 20210922
  4. VOXELOTOR [Suspect]
     Active Substance: VOXELOTOR
     Dosage: 1500 MG, 1X/DAY
     Dates: start: 20210924, end: 20211028
  5. VOXELOTOR [Suspect]
     Active Substance: VOXELOTOR
     Dosage: 1500 MG, 1X/DAY
     Dates: start: 20211029, end: 20211201
  6. VOXELOTOR [Suspect]
     Active Substance: VOXELOTOR
     Dosage: 1500 MG, 1X/DAY
     Dates: start: 20211205, end: 20220224
  7. VOXELOTOR [Suspect]
     Active Substance: VOXELOTOR
     Dosage: 1500 MG, 1X/DAY
     Dates: start: 20220311, end: 20220507
  8. VOXELOTOR [Suspect]
     Active Substance: VOXELOTOR
     Dosage: 1500 MG, 1X/DAY
     Dates: start: 20220523, end: 20220912
  9. VOXELOTOR [Suspect]
     Active Substance: VOXELOTOR
     Dosage: 1500 MG, 1X/DAY
     Dates: start: 20220922, end: 20220929
  10. VOXELOTOR [Suspect]
     Active Substance: VOXELOTOR
     Dosage: 1500 MG, 1X/DAY
     Dates: start: 20221008, end: 20221110
  11. VITAMIN D2 [Concomitant]
     Active Substance: ERGOCALCIFEROL
     Indication: Vitamin D deficiency
     Dosage: 50000 IU, EVERY 14 DAYS
     Route: 048
  12. FOLIC ACID [Concomitant]
     Active Substance: FOLIC ACID
     Indication: Sickle cell disease
     Dosage: 1 MG, 1X/DAY
     Route: 048
  13. OXYCODONE [Concomitant]
     Active Substance: OXYCODONE
     Indication: Sickle cell disease
     Dosage: 10 MG, Q4H PRN
     Route: 048
     Dates: start: 20160926, end: 20201106
  14. OXYCODONE [Concomitant]
     Active Substance: OXYCODONE
     Dosage: 15 MG, Q4H PRN
     Route: 048
     Dates: start: 20201106, end: 20211220
  15. OXYCODONE [Concomitant]
     Active Substance: OXYCODONE
     Dosage: 30 MG, Q4H PRN
     Route: 048
     Dates: start: 20211220
  16. MORPHINE [Concomitant]
     Active Substance: MORPHINE
     Indication: Sickle cell disease
     Dosage: 10 MG, SINGLE
     Route: 042
     Dates: start: 20210730, end: 20210730
  17. HYDROMORPHONE [Concomitant]
     Active Substance: HYDROMORPHONE
     Indication: Sickle cell disease
     Dosage: 2 MG, 3X/DAY
     Route: 042
     Dates: start: 20220401, end: 20220401
  18. HYDROMORPHONE [Concomitant]
     Active Substance: HYDROMORPHONE
     Dosage: 2 MG, 2X/DAY
     Route: 042
     Dates: start: 20220823, end: 20220823

REACTIONS (1)
  - Sickle cell anaemia with crisis [Recovered/Resolved]

NARRATIVE: CASE EVENT DATE: 20221030
